FAERS Safety Report 8618086-7 (Version None)
Quarter: 2012Q3

REPORT INFORMATION
  Report Type: 
  Country: None (occurrence: None)
  Receive Date: 20120824
  Receipt Date: 20120502
  Transmission Date: 20120928
  Serious: No
  Sender: FDA-Public Use
  Company Number: US-ASTRAZENECA-2012SE28491

PATIENT
  Age: 75 Year
  Sex: Male
  Weight: 102.1 kg

DRUGS (12)
  1. RANITIDINE [Concomitant]
     Indication: HIATUS HERNIA
  2. MAGNESIUM [Concomitant]
     Indication: MEDICAL DIET
  3. LUTEN [Concomitant]
     Indication: MEDICAL DIET
  4. MEDICINE TO STOP ACID REFLUX [Concomitant]
     Indication: GASTROOESOPHAGEAL REFLUX DISEASE
  5. LISINOPRIL [Concomitant]
     Indication: BLOOD PRESSURE INADEQUATELY CONTROLLED
     Route: 048
     Dates: start: 20100101
  6. BETA-CAROTENE [Concomitant]
     Indication: MEDICAL DIET
  7. JALYN [Concomitant]
     Indication: BENIGN PROSTATIC HYPERPLASIA
     Dates: start: 20100101
  8. JALYN [Concomitant]
     Route: 048
     Dates: start: 20100101
  9. ZINC SULFATE [Concomitant]
     Indication: MEDICAL DIET
  10. SYMBICORT [Suspect]
     Indication: ASTHMA
     Dosage: 160/4.5MCG TWO PUFFS BEFORE BEDTIME
     Route: 055
  11. IRON [Concomitant]
     Indication: MEDICAL DIET
  12. LOVAZA [Concomitant]
     Indication: MEDICAL DIET

REACTIONS (7)
  - EPIGLOTTITIS [None]
  - OFF LABEL USE [None]
  - WHEEZING [None]
  - BLOOD PRESSURE ABNORMAL [None]
  - LUNG INFECTION [None]
  - COUGH [None]
  - CHOKING SENSATION [None]
